FAERS Safety Report 23941720 (Version 1)
Quarter: 2024Q2

REPORT INFORMATION
  Report Type: Other
  Country: US (occurrence: US)
  Receive Date: 20240605
  Receipt Date: 20240605
  Transmission Date: 20240716
  Serious: Yes (Hospitalization)
  Sender: FDA-Public Use
  Company Number: US-AVEVA-000645

PATIENT
  Age: 21 Year
  Sex: Male

DRUGS (5)
  1. BUPRENORPHINE [Suspect]
     Active Substance: BUPRENORPHINE
     Indication: Drug use disorder
     Dosage: 10 MICROGRAM PER HOUR (1 MILLIGRAM BID) (DAY 1)
     Route: 062
  2. BUPRENORPHINE [Suspect]
     Active Substance: BUPRENORPHINE
     Indication: Drug use disorder
     Dosage: 10 MICROGRAM PER HOUR (1 MILLIGRAM QID) (DAY 2)
     Route: 062
  3. BUPRENORPHINE [Suspect]
     Active Substance: BUPRENORPHINE
     Indication: Drug use disorder
     Dosage: 10 MICROGRAM PER HOUR (1 MILLIGRAM 8 TIMES A DAY) (DAY 3)
     Route: 062
  4. BUPRENORPHINE [Suspect]
     Active Substance: BUPRENORPHINE
     Indication: Drug use disorder
     Dosage: 10 MICROGRAM PER HOUR (8 MILLIGRAM BID) (DAY 4)
     Route: 062
  5. BUPRENORPHINE [Suspect]
     Active Substance: BUPRENORPHINE
     Indication: Drug use disorder
     Dosage: LOW DOSE
     Route: 060

REACTIONS (1)
  - Therapy partial responder [Unknown]
